FAERS Safety Report 8647043 (Version 6)
Quarter: 2018Q2

REPORT INFORMATION
  Report Type: Report from Study
  Country: JP (occurrence: JP)
  Receive Date: 20120703
  Receipt Date: 20180530
  Transmission Date: 20180711
  Serious: Yes (Other)
  Sender: FDA-Public Use
  Company Number: PHHY2012JP056491

PATIENT
  Age: 55 Year
  Sex: Male
  Weight: 47 kg

DRUGS (11)
  1. TASIGNA [Suspect]
     Active Substance: NILOTINIB
     Dosage: 300 MG, BID
     Route: 048
     Dates: start: 20110706, end: 20110802
  2. TASIGNA [Suspect]
     Active Substance: NILOTINIB
     Dosage: 200 MG, BID
     Route: 048
     Dates: start: 20120704, end: 20120717
  3. TASIGNA [Suspect]
     Active Substance: NILOTINIB
     Dosage: 200 MG, BID
     Route: 048
     Dates: start: 20110330, end: 20110705
  4. TASIGNA [Suspect]
     Active Substance: NILOTINIB
     Dosage: 300 MG, BID
     Route: 048
     Dates: start: 20110907, end: 20111004
  5. TASIGNA [Suspect]
     Active Substance: NILOTINIB
     Dosage: 400 MG, BID
     Route: 048
     Dates: start: 20111005, end: 20120627
  6. TRANSAMIN [Concomitant]
     Active Substance: TRANEXAMIC ACID
     Indication: PANCYTOPENIA
     Dosage: 750 MG
     Route: 048
     Dates: start: 20091225, end: 20100116
  7. TASIGNA [Suspect]
     Active Substance: NILOTINIB
     Dosage: 200 MG, BID
     Route: 048
     Dates: start: 20110803, end: 20110906
  8. TAKEPRON [Concomitant]
     Active Substance: LANSOPRAZOLE
     Indication: PROPHYLAXIS
     Dosage: 15 MG
     Route: 048
     Dates: start: 20091224, end: 20100123
  9. TASIGNA [Suspect]
     Active Substance: NILOTINIB
     Indication: CHRONIC MYELOID LEUKAEMIA
     Dosage: 400 MG, BID
     Route: 048
     Dates: start: 20091224, end: 20110322
  10. TASIGNA [Suspect]
     Active Substance: NILOTINIB
     Dosage: 300 MG, BID
     Route: 048
     Dates: start: 20120718
  11. OMEPRAZOLE. [Concomitant]
     Active Substance: OMEPRAZOLE
     Indication: PRODUCT USED FOR UNKNOWN INDICATION
     Dosage: 10 MG
     Route: 048
     Dates: start: 20111221, end: 20120103

REACTIONS (12)
  - Rash maculo-papular [Recovering/Resolving]
  - Pruritus [Recovering/Resolving]
  - Palpitations [Recovered/Resolved]
  - Hepatic function abnormal [Unknown]
  - Rash [Recovered/Resolved]
  - Hyperbilirubinaemia [Recovered/Resolved]
  - Drug eruption [Recovered/Resolved]
  - Nausea [Recovered/Resolved]
  - Platelet count decreased [Unknown]
  - Sinus node dysfunction [Recovered/Resolved]
  - Electrocardiogram QT prolonged [Recovered/Resolved]
  - Hyperbilirubinaemia [Recovering/Resolving]

NARRATIVE: CASE EVENT DATE: 20091225
